FAERS Safety Report 7508172-7 (Version None)
Quarter: 2011Q2

REPORT INFORMATION
  Report Type: 
  Country: None (occurrence: None)
  Receive Date: 20110527
  Receipt Date: 20110218
  Transmission Date: 20111010
  Serious: No
  Sender: FDA-Public Use
  Company Number: US-MYLANLABS-2011S1003633

PATIENT

DRUGS (1)
  1. BUPROPION HYDROCHLORIDE [Suspect]
     Indication: LETHARGY
     Route: 048

REACTIONS (8)
  - DEPRESSION [None]
  - MOOD ALTERED [None]
  - HOSTILITY [None]
  - DRUG INEFFECTIVE FOR UNAPPROVED INDICATION [None]
  - IMPATIENCE [None]
  - FEELING ABNORMAL [None]
  - ANXIETY [None]
  - LETHARGY [None]
